FAERS Safety Report 8304942-6 (Version None)
Quarter: 2012Q2

REPORT INFORMATION
  Report Type: 
  Country: None (occurrence: None)
  Receive Date: 20120411
  Receipt Date: 20120328
  Transmission Date: 20120825
  Serious: Yes (Other)
  Sender: FDA-Public Use
  Company Number: 2012031427

PATIENT
  Sex: Female
  Weight: 113.3993 kg

DRUGS (5)
  1. BERINERT [Suspect]
     Indication: HEREDITARY ANGIOEDEMA
     Dosage: SEE IMAGE
     Route: 042
     Dates: start: 20120205
  2. BERINERT [Suspect]
     Indication: HEREDITARY ANGIOEDEMA
     Dosage: SEE IMAGE
     Route: 042
     Dates: start: 20120214
  3. BERINERT [Suspect]
     Indication: HEREDITARY ANGIOEDEMA
     Dosage: SEE IMAGE
     Route: 042
     Dates: start: 20120204
  4. CINRYZE [Suspect]
     Indication: HEREDITARY ANGIOEDEMA
     Dosage: (1000 UNITS EVERY THREE DAYS), (1500 UNITS EVERY THREE DAYS)
     Dates: start: 20120110
  5. CINRYZE [Suspect]
     Indication: HEREDITARY ANGIOEDEMA
     Dosage: (1000 UNITS EVERY THREE DAYS), (1500 UNITS EVERY THREE DAYS)
     Dates: start: 20120218

REACTIONS (19)
  - LOSS OF CONSCIOUSNESS [None]
  - CHEST PAIN [None]
  - DYSPNOEA [None]
  - CONVULSION [None]
  - MUSCULOSKELETAL DISORDER [None]
  - DYSPHAGIA [None]
  - DIZZINESS [None]
  - PAIN [None]
  - HEADACHE [None]
  - FEELING ABNORMAL [None]
  - INFUSION RELATED REACTION [None]
  - SINUS HEADACHE [None]
  - DISORIENTATION [None]
  - INCONTINENCE [None]
  - ASTHENIA [None]
  - SWELLING [None]
  - FALL [None]
  - TREMOR [None]
  - YAWNING [None]
